FAERS Safety Report 10230389 (Version 1)
Quarter: 2014Q2

REPORT INFORMATION
  Report Type: Spontaneous
  Country: US (occurrence: US)
  Receive Date: 20140611
  Receipt Date: 20140611
  Transmission Date: 20141212
  Serious: No
  Sender: FDA-Public Use
  Company Number: US-INCYTE CORPORATION-2014IN000508

PATIENT
  Sex: Female

DRUGS (3)
  1. JAKAFI [Suspect]
     Dosage: 10 MG, BID
     Route: 048
  2. JAKAFI [Suspect]
     Dosage: 10 MG, QD
     Route: 048
  3. JAKAFI [Suspect]
     Dosage: 10 MG, BID
     Route: 048

REACTIONS (2)
  - Tooth infection [Unknown]
  - Medication error [Unknown]
